FAERS Safety Report 14259084 (Version 1)
Quarter: 2017Q4

REPORT INFORMATION
  Report Type: Spontaneous
  Country: US (occurrence: US)
  Receive Date: 20171207
  Receipt Date: 20171207
  Transmission Date: 20180321
  Serious: Yes (Other)
  Sender: FDA-Public Use
  Company Number: None

PATIENT
  Age: 37 Year
  Sex: Female
  Weight: 81 kg

DRUGS (2)
  1. FLUTICASONE PROPIONATE NASAL SPRAY, USP [Suspect]
     Active Substance: FLUTICASONE PROPIONATE
     Indication: SINUSITIS
     Dosage: ?          QUANTITY:1 SPRAY(S);?
     Route: 045
  2. FLUTICASONE PROPIONATE NASAL SPRAY, USP [Suspect]
     Active Substance: FLUTICASONE PROPIONATE
     Indication: ASTHMA
     Dosage: ?          QUANTITY:1 SPRAY(S);?
     Route: 045

REACTIONS (11)
  - Sinus disorder [None]
  - Cyst [None]
  - Exposure during breast feeding [None]
  - Emotional disorder [None]
  - Pain in extremity [None]
  - Exposure during pregnancy [None]
  - Speech disorder [None]
  - Aggression [None]
  - Pruritus [None]
  - Sinus pain [None]
  - Palpitations [None]

NARRATIVE: CASE EVENT DATE: 20171206
